FAERS Safety Report 18917655 (Version 2)
Quarter: 2021Q3

REPORT INFORMATION
  Report Type: Report from Study
  Country: US (occurrence: US)
  Receive Date: 20210219
  Receipt Date: 20210726
  Transmission Date: 20211014
  Serious: Yes (Other)
  Sender: FDA-Public Use
  Company Number: US-SHIRE-US202012301

PATIENT
  Age: 49 Year
  Sex: Female

DRUGS (2)
  1. HUMAN NORMAL IMMUNOGLOBULIN; LIQUID [Suspect]
     Active Substance: HUMAN IMMUNOGLOBULIN G
     Indication: PRIMARY IMMUNODEFICIENCY SYNDROME
     Dosage: 30 GRAM
     Route: 042
  2. IRON [Concomitant]
     Active Substance: IRON
     Route: 042

REACTIONS (20)
  - Poor venous access [Unknown]
  - Iron deficiency anaemia [Unknown]
  - Foot operation [Unknown]
  - Pyrexia [Unknown]
  - Cellulitis [Unknown]
  - Fungal sepsis [Unknown]
  - Limb injury [Unknown]
  - Thyroid mass [Unknown]
  - Tendon rupture [Unknown]
  - Amnesia [Unknown]
  - Impaired gastric emptying [Not Recovered/Not Resolved]
  - Rib fracture [Unknown]
  - Malabsorption [Not Recovered/Not Resolved]
  - Lipoma [Unknown]
  - Lymphoedema [None]
  - Ingrowing nail [Unknown]
  - Dyspnoea [Unknown]
  - Tooth loss [Unknown]
  - Lipoma [None]
  - Fall [Unknown]

NARRATIVE: CASE EVENT DATE: 20200402
